FAERS Safety Report 13782935 (Version 1)
Quarter: 2017Q3

REPORT INFORMATION
  Report Type: Spontaneous
  Country: GB (occurrence: GB)
  Receive Date: 20170724
  Receipt Date: 20170724
  Transmission Date: 20171127
  Serious: Yes (Disabling)
  Sender: FDA-Public Use
  Company Number: GB-PFIZER INC-333496

PATIENT
  Age: 13 Year
  Sex: Male
  Weight: 78 kg

DRUGS (4)
  1. ENBREL [Concomitant]
     Active Substance: ETANERCEPT
     Dosage: 20 MG, FREQUENCY:2/1WEEK; FREQ: 2 WEEK
     Route: 058
     Dates: start: 20061201
  2. METHOTREXATE SODIUM. [Suspect]
     Active Substance: METHOTREXATE SODIUM
     Dosage: 20 MG, FREQ: 1 WEEK
     Route: 048
     Dates: start: 20060818
  3. OMEPRAZOLE. [Concomitant]
     Active Substance: OMEPRAZOLE
     Dosage: 20 MG, FREQ: 1 DAY
     Route: 048
     Dates: start: 20060601
  4. FERROUS SULFATE. [Concomitant]
     Active Substance: FERROUS SULFATE
     Dosage: 200 MG, FREQ: 3 DAY
     Route: 048
     Dates: start: 20060601

REACTIONS (1)
  - Skin exfoliation [Recovering/Resolving]

NARRATIVE: CASE EVENT DATE: 20080521
